FAERS Safety Report 7478282-1 (Version None)
Quarter: 2011Q2

REPORT INFORMATION
  Report Type: 
  Country: None (occurrence: None)
  Receive Date: 20110513
  Receipt Date: 20110509
  Transmission Date: 20111010
  Serious: Yes (Life-Threatening, Hospitalization)
  Sender: FDA-Public Use
  Company Number: PHHY2011JP24651

PATIENT
  Sex: Female
  Weight: 42 kg

DRUGS (4)
  1. ALISKIREN [Suspect]
     Indication: HYPERTENSION
     Dosage: 150 MG, UNK
     Route: 048
     Dates: start: 20100306, end: 20110115
  2. OLMESARTAN MEDOXOMIL [Suspect]
     Indication: HYPERTENSION
     Dosage: 20 MG, UNK
     Route: 048
     Dates: start: 20100306, end: 20110115
  3. AZELASTINE [Suspect]
     Indication: HYPERTENSION
     Dosage: 16 MG, UNK
     Route: 048
     Dates: start: 20100306, end: 20110115
  4. ONEALFA [Suspect]
     Dosage: 1 MG, UNK
     Route: 048
     Dates: start: 20100306, end: 20110115

REACTIONS (3)
  - HAEMOGLOBIN DECREASED [None]
  - BLOOD POTASSIUM DECREASED [None]
  - ACUTE MYOCARDIAL INFARCTION [None]
